FAERS Safety Report 6211357-3 (Version None)
Quarter: 2009Q2

REPORT INFORMATION
  Report Type: 
  Country: None (occurrence: None)
  Receive Date: 20090528
  Receipt Date: 20090520
  Transmission Date: 20091009
  Serious: Yes (Death)
  Sender: FDA-Public Use
  Company Number: 2006JP004648

PATIENT
  Age: 74 Year
  Sex: Male
  Weight: 66 kg

DRUGS (23)
  1. TACROLIMUS [Suspect]
     Indication: RHEUMATOID ARTHRITIS
     Dosage: 1 MG, ORAL; 2 MG, ORAL; 1.5 MG, ORAL; 0.5 MG, ORAL
     Route: 048
     Dates: start: 20060110, end: 20060206
  2. TACROLIMUS [Suspect]
     Indication: RHEUMATOID ARTHRITIS
     Dosage: 1 MG, ORAL; 2 MG, ORAL; 1.5 MG, ORAL; 0.5 MG, ORAL
     Route: 048
     Dates: start: 20060207, end: 20060314
  3. TACROLIMUS [Suspect]
     Indication: RHEUMATOID ARTHRITIS
     Dosage: 1 MG, ORAL; 2 MG, ORAL; 1.5 MG, ORAL; 0.5 MG, ORAL
     Route: 048
     Dates: start: 20060315, end: 20060501
  4. TACROLIMUS [Suspect]
     Indication: RHEUMATOID ARTHRITIS
     Dosage: 1 MG, ORAL; 2 MG, ORAL; 1.5 MG, ORAL; 0.5 MG, ORAL
     Route: 048
     Dates: start: 20060502, end: 20060807
  5. TACROLIMUS [Suspect]
     Indication: RHEUMATOID ARTHRITIS
     Dosage: 1 MG, ORAL; 2 MG, ORAL; 1.5 MG, ORAL; 0.5 MG, ORAL
     Route: 048
     Dates: start: 20060808, end: 20061121
  6. TACROLIMUS [Suspect]
     Indication: RHEUMATOID ARTHRITIS
     Dosage: 1 MG, ORAL; 2 MG, ORAL; 1.5 MG, ORAL; 0.5 MG, ORAL
     Route: 048
     Dates: start: 20061122, end: 20071016
  7. TACROLIMUS [Suspect]
     Indication: RHEUMATOID ARTHRITIS
     Dosage: 1 MG, ORAL; 2 MG, ORAL; 1.5 MG, ORAL; 0.5 MG, ORAL
     Route: 048
     Dates: start: 20071017, end: 20071225
  8. TACROLIMUS [Suspect]
     Indication: RHEUMATOID ARTHRITIS
     Dosage: 1 MG, ORAL; 2 MG, ORAL; 1.5 MG, ORAL; 0.5 MG, ORAL
     Route: 048
     Dates: start: 20071226, end: 20080306
  9. TACROLIMUS [Suspect]
     Indication: RHEUMATOID ARTHRITIS
     Dosage: 1 MG, ORAL; 2 MG, ORAL; 1.5 MG, ORAL; 0.5 MG, ORAL
     Route: 048
     Dates: start: 20080307, end: 20080327
  10. TACROLIMUS [Suspect]
     Indication: RHEUMATOID ARTHRITIS
     Dosage: 1 MG, ORAL; 2 MG, ORAL; 1.5 MG, ORAL; 0.5 MG, ORAL
     Route: 048
     Dates: start: 20080328, end: 20080826
  11. TACROLIMUS [Suspect]
     Indication: RHEUMATOID ARTHRITIS
     Dosage: 1 MG, ORAL; 2 MG, ORAL; 1.5 MG, ORAL; 0.5 MG, ORAL
     Route: 048
     Dates: start: 20080827
  12. CLINORIL [Suspect]
     Indication: RHEUMATOID ARTHRITIS
     Dosage: 300 MG, ORAL
     Route: 048
  13. PREDNISOLONE [Concomitant]
  14. RIDAURA PER ORAL NOS [Concomitant]
  15. MIKELAN (CARTEOLOL HYDROCHLORIDE) TABLET [Concomitant]
  16. ADALAT CR ORODISPERSIBLE CR TABLET [Concomitant]
  17. ACECOL (TEMOCAPRIL HYDROCHLORIDE) TABLET [Concomitant]
  18. LIPOVAS (SIMVASTATIN) TABLET [Concomitant]
  19. CONTOL (CHLORDIAZEPOXIDE) PER ORAL NOS [Concomitant]
  20. SOLON (SOFALCONE) FINE GRANULE [Concomitant]
  21. MAGNESIUM OXIDE (MAGNESIUM OXIDE) PER ORAL NOS [Concomitant]
  22. JUSAN (SODIUM BICARBONATE, DIASTASE, GENTIANA LUTEA ROOT) PER ORAL NOS [Concomitant]
  23. VASOLAN (ISOXSUPRINE HYDROCHLORIDE) TABLET [Concomitant]

REACTIONS (3)
  - BILE DUCT CANCER [None]
  - BUNDLE BRANCH BLOCK LEFT [None]
  - VENTRICULAR EXTRASYSTOLES [None]
